FAERS Safety Report 7959341-3 (Version None)
Quarter: 2011Q4

REPORT INFORMATION
  Report Type: 
  Country: None (occurrence: None)
  Receive Date: 20111206
  Receipt Date: 20111130
  Transmission Date: 20120403
  Serious: Yes (Hospitalization, Congenital Anomaly, Other)
  Sender: FDA-Public Use
  Company Number: US-PFIZER INC-2011105532

PATIENT
  Sex: Male
  Weight: 3.3 kg

DRUGS (20)
  1. ZOLOFT [Suspect]
     Dosage: 150 MG, ONE TABLET DAILY
     Route: 064
     Dates: start: 20090112
  2. ALPRAZOLAM [Concomitant]
     Dosage: 0.25 MG, UNK
     Route: 064
     Dates: start: 20090804, end: 20090806
  3. ZOLOFT [Suspect]
     Dosage: 50 MG, 2X/DAY
     Route: 064
     Dates: start: 20090527
  4. ZOLOFT [Suspect]
     Dosage: UNK
     Route: 064
     Dates: start: 20050519
  5. IRON [Concomitant]
     Dosage: UNK
     Route: 064
  6. PROPOXYPHENE NAPSYLATE W/ ACETAMINOPHEN [Concomitant]
     Dosage: 100/650, UNK
     Route: 064
     Dates: start: 20090529
  7. LAMOTRIGINE [Concomitant]
     Dosage: 100 MG, UNK
     Route: 064
     Dates: start: 20081017, end: 20091201
  8. ACETAMINOPHEN AND HYDROCODONE BITARTRATE [Concomitant]
     Dosage: 5 MG/500 MG
     Route: 064
     Dates: start: 20091006
  9. VITAMIN B6 [Concomitant]
     Dosage: 100 MG, DAILY
     Route: 064
     Dates: start: 20090421
  10. LAMICTAL [Concomitant]
     Indication: CONVULSION
     Dosage: 100 MG, 2X/DAY
     Route: 064
     Dates: start: 20090112
  11. FOLIC ACID [Concomitant]
     Dosage: UNK
     Route: 064
  12. FOLIC ACID [Concomitant]
     Dosage: 1 MG, UNK
     Route: 064
     Dates: start: 20090311, end: 20090923
  13. KEPPRA [Concomitant]
     Indication: CONVULSION
     Dosage: 750 MG
     Route: 064
     Dates: start: 20090429
  14. LEVETIRACETAM [Concomitant]
     Dosage: 500 MG, ONE AND HALF TABLET TWICE DAILY
     Route: 064
     Dates: start: 20080110, end: 20090316
  15. LEVETIRACETAM [Concomitant]
     Dosage: 750 MG, UNK
     Route: 064
     Dates: start: 20090402, end: 20091017
  16. LAMOTRIGINE [Concomitant]
     Dosage: 200 MG, 2X/DAY
     Route: 064
     Dates: start: 20090928
  17. FOLIC ACID [Concomitant]
     Dosage: 4 MG, DAILY
     Route: 064
     Dates: start: 20090112
  18. ZOLOFT [Suspect]
     Dosage: 100 MG, ONE AND HALF TABLET EVERY DAY
     Route: 064
     Dates: start: 20081118
  19. MULTI-VITAMINS [Concomitant]
     Dosage: ONE TABLET DAILY
     Route: 064
     Dates: start: 20090421
  20. ZOLOFT [Suspect]
     Dosage: 50 MG, 1X/DAY
     Route: 064
     Dates: start: 20031218

REACTIONS (28)
  - FAILURE TO THRIVE [None]
  - JAUNDICE [None]
  - SEPSIS NEONATAL [None]
  - INSOMNIA [None]
  - PYREXIA [None]
  - RESPIRATORY DISORDER [None]
  - LIVEDO RETICULARIS [None]
  - AMMONIA INCREASED [None]
  - FOETAL EXPOSURE DURING PREGNANCY [None]
  - HEART DISEASE CONGENITAL [None]
  - ROAD TRAFFIC ACCIDENT [None]
  - TACHYPNOEA [None]
  - MOTOR DEVELOPMENTAL DELAY [None]
  - IRRITABILITY [None]
  - SKIN DISCOLOURATION [None]
  - CRYING [None]
  - DIARRHOEA [None]
  - EAR CONGESTION [None]
  - CONSTIPATION [None]
  - UPPER RESPIRATORY TRACT INFECTION [None]
  - COUGH [None]
  - HYPOXIA [None]
  - RESPIRATORY DISTRESS [None]
  - RHINORRHOEA [None]
  - ATRIAL SEPTAL DEFECT [None]
  - CYANOSIS [None]
  - AUTONOMIC NERVOUS SYSTEM IMBALANCE [None]
  - PAPULE [None]
